FAERS Safety Report 13370885 (Version 1)
Quarter: 2017Q1

REPORT INFORMATION
  Report Type: Spontaneous
  Country: JP (occurrence: JP)
  Receive Date: 20170324
  Receipt Date: 20170324
  Transmission Date: 20170429
  Serious: Yes (Other)
  Sender: FDA-Public Use
  Company Number: JP-PFIZER INC-2017126260

PATIENT
  Age: 62 Year
  Sex: Male

DRUGS (3)
  1. ITRACONAZOLE. [Suspect]
     Active Substance: ITRACONAZOLE
     Indication: ASPERGILLOMA
     Dosage: UNK
  2. MICAFUNGIN [Suspect]
     Active Substance: MICAFUNGIN
     Indication: ASPERGILLOMA
     Dosage: UNK
  3. CEFTRIAXONE SODIUM. [Suspect]
     Active Substance: CEFTRIAXONE SODIUM
     Indication: ASPERGILLOMA
     Dosage: UNK

REACTIONS (1)
  - Drug eruption [Unknown]
